FAERS Safety Report 25311381 (Version 1)
Quarter: 2025Q2

REPORT INFORMATION
  Report Type: Report from Study
  Country: US (occurrence: US)
  Receive Date: 20250514
  Receipt Date: 20250514
  Transmission Date: 20250717
  Serious: No
  Sender: SUNOVION
  Company Number: US-SUMITOMO PHARMA SWITZERLAND GMBH-2025SPA004871

PATIENT

DRUGS (13)
  1. ORGOVYX [Suspect]
     Active Substance: RELUGOLIX
     Indication: Prostate cancer
     Route: 048
  2. ORGOVYX [Suspect]
     Active Substance: RELUGOLIX
     Dosage: 120 MG, QD
     Route: 048
  3. CINACALCET [Concomitant]
     Active Substance: CINACALCET
     Route: 065
  4. ERIVEDGE [Concomitant]
     Active Substance: VISMODEGIB
     Route: 065
  5. ERLEADA [Concomitant]
     Active Substance: APALUTAMIDE
     Route: 065
  6. GLIMEPIRIDE [Concomitant]
     Active Substance: GLIMEPIRIDE
     Route: 065
  7. JANUVIA [Concomitant]
     Active Substance: SITAGLIPTIN PHOSPHATE
     Route: 065
  8. METOLAZONE [Concomitant]
     Active Substance: METOLAZONE
     Route: 065
  9. OXYBUTYNIN [Concomitant]
     Active Substance: OXYBUTYNIN
     Route: 065
  10. PREDNISONE [Concomitant]
     Active Substance: PREDNISONE
     Route: 065
  11. ROSUVASTATIN [Concomitant]
     Active Substance: ROSUVASTATIN
     Route: 065
  12. TAMSULOSIN [Concomitant]
     Active Substance: TAMSULOSIN
     Route: 065
  13. ZORTRESS [Concomitant]
     Active Substance: EVEROLIMUS
     Route: 065

REACTIONS (4)
  - Hot flush [Unknown]
  - Fatigue [Unknown]
  - Weight increased [Unknown]
  - Arthralgia [Unknown]
